FAERS Safety Report 9797145 (Version 1)
Quarter: 2014Q1

REPORT INFORMATION
  Report Type: Spontaneous
  Country: US (occurrence: None)
  Receive Date: 20140102
  Receipt Date: 20140102
  Transmission Date: 20141002
  Serious: Yes (Disabling, Other)
  Sender: FDA-Public Use
  Company Number: None

PATIENT
  Age: 73 Year
  Sex: Female
  Weight: 68.04 kg

DRUGS (4)
  1. ZYPREXA [Suspect]
     Indication: AGITATION
     Route: 048
     Dates: start: 20130610, end: 20131025
  2. ZYPREXA [Suspect]
     Indication: DEMENTIA
     Route: 048
     Dates: start: 20130610, end: 20131025
  3. EXECION [Concomitant]
  4. PAXIL [Concomitant]

REACTIONS (4)
  - Foot deformity [None]
  - Dysstasia [None]
  - Abasia [None]
  - Pulmonary embolism [None]
